FAERS Safety Report 17246307 (Version 3)
Quarter: 2020Q1

REPORT INFORMATION
  Report Type: Spontaneous
  Country: CA (occurrence: CA)
  Receive Date: 20200108
  Receipt Date: 20200306
  Transmission Date: 20200409
  Serious: Yes (Death, Hospitalization)
  Sender: FDA-Public Use
  Company Number: CA-PFIZER INC-2020006882

PATIENT
  Age: 54 Year
  Sex: Male
  Weight: 79.5 kg

DRUGS (13)
  1. STATEX [MORPHINE SULFATE] [Concomitant]
     Active Substance: MORPHINE SULFATE
     Indication: PAIN
     Dosage: 5 MG, AS NEEDED
     Dates: start: 20191021
  2. ACT METFORMIN [Concomitant]
     Active Substance: METFORMIN HYDROCHLORIDE
     Indication: DIABETES MELLITUS
     Dosage: 850 MG, 1X/DAY
     Dates: start: 20190529
  3. INLYTA [Suspect]
     Active Substance: AXITINIB
     Dosage: 15 G, DAILY (10 G MORNING, 5 G NIGHT)
     Route: 048
     Dates: start: 20191029, end: 20191103
  4. SANDOZ IRBESARTAN [Concomitant]
     Active Substance: IRBESARTAN
     Indication: HYPERTENSION
     Dosage: 150 MG, 1X/DAY
     Dates: start: 20190709
  5. JAMP DICYCLOMINE HCL [Concomitant]
     Dosage: 10 MG, 4X/DAY
     Dates: start: 20190705
  6. SANDOZ RABEPRAZOLE [Concomitant]
     Active Substance: RABEPRAZOLE
     Dosage: 20 MG, 2X/DAY
     Dates: start: 20190116
  7. EMOLAX [SODIUM PICOSULFATE] [Concomitant]
     Indication: CONSTIPATION
     Dosage: 100 %, 1X/DAY
     Dates: start: 20190316
  8. INLYTA [Suspect]
     Active Substance: AXITINIB
     Indication: RENAL CELL CARCINOMA
     Dosage: 5 MG, 2X/DAY
     Route: 048
     Dates: start: 20190628
  9. BACLOFEN. [Concomitant]
     Active Substance: BACLOFEN
     Dosage: 10 MG, 2X/DAY
     Dates: start: 20190416
  10. VENOFER [Concomitant]
     Active Substance: IRON SUCROSE
     Dosage: UNK 300 MG (15 ML) ONCE EVERY 2 WEEKS.
     Route: 042
     Dates: start: 20190529
  11. MINT GLICLAZIDE [Concomitant]
     Active Substance: GLICLAZIDE
     Indication: DIABETES MELLITUS
     Dosage: 60 MG, 1X/DAY
     Dates: start: 20190529
  12. SYNTHROID [Concomitant]
     Active Substance: LEVOTHYROXINE SODIUM
     Indication: THYROID DISORDER
     Dosage: 100 MG, 1X/DAY
     Dates: start: 20190328
  13. PROCHLORAZINE [Concomitant]
     Dosage: 10 MG, AS NEEDED
     Dates: start: 20190626

REACTIONS (4)
  - Blood bilirubin increased [Unknown]
  - Cellulitis [Unknown]
  - Pain [Unknown]
  - Neoplasm progression [Fatal]

NARRATIVE: CASE EVENT DATE: 20191101
